FAERS Safety Report 20923464 (Version 1)
Quarter: 2022Q2

REPORT INFORMATION
  Report Type: Other
  Country: FR (occurrence: FR)
  Receive Date: 20220607
  Receipt Date: 20220607
  Transmission Date: 20220721
  Serious: Yes (Hospitalization, Other)
  Sender: FDA-Public Use
  Company Number: FR-ASTELLAS-2022US019960

PATIENT
  Age: 66 Year
  Sex: Male
  Weight: 60 kg

DRUGS (3)
  1. AMPHOTERICIN B [Suspect]
     Active Substance: AMPHOTERICIN B
     Indication: Aspergilloma
     Route: 041
     Dates: start: 20220315, end: 20220411
  2. AMPHOTERICIN B [Suspect]
     Active Substance: AMPHOTERICIN B
     Route: 041
     Dates: start: 20220409, end: 20220409
  3. FUNGIZONE [Suspect]
     Active Substance: AMPHOTERICIN B
     Indication: Aspergilloma
     Route: 041
     Dates: start: 20220409, end: 20220409

REACTIONS (2)
  - Acute kidney injury [Recovering/Resolving]
  - Wrong product administered [Recovered/Resolved]

NARRATIVE: CASE EVENT DATE: 20220509
